FAERS Safety Report 7860061-4 (Version None)
Quarter: 2011Q4

REPORT INFORMATION
  Report Type: 
  Country: None (occurrence: None)
  Receive Date: 20111025
  Receipt Date: 20111019
  Transmission Date: 20120403
  Serious: No
  Sender: FDA-Public Use
  Company Number: 2011-01300

PATIENT
  Age: 62 Year
  Sex: Female
  Weight: 58.9676 kg

DRUGS (4)
  1. MULTI-VITAMIN [Concomitant]
  2. ZICAM COLD REMEDY PLUS LIQUI-LOZ [Suspect]
     Indication: OROPHARYNGEAL PAIN
     Dosage: EVERY 3 HOURS
     Dates: start: 20111010, end: 20111015
  3. ZICAM COLD REMEDY PLUS LIQUI-LOZ [Suspect]
     Indication: RHINORRHOEA
     Dosage: EVERY 3 HOURS
     Dates: start: 20111010, end: 20111015
  4. ZICAM COLD REMEDY PLUS LIQUI-LOZ [Suspect]
     Indication: SNEEZING
     Dosage: EVERY 3 HOURS
     Dates: start: 20111010, end: 20111015

REACTIONS (1)
  - DYSGEUSIA [None]
